FAERS Safety Report 7622375-2 (Version None)
Quarter: 2011Q3

REPORT INFORMATION
  Report Type: 
  Country: None (occurrence: None)
  Receive Date: 20110711
  Receipt Date: 20110624
  Transmission Date: 20111222
  Serious: Yes (Other)
  Sender: FDA-Public Use
  Company Number: DSA_47036_2011

PATIENT
  Sex: Female

DRUGS (1)
  1. ELIDEL [Suspect]
     Indication: RASH
     Dosage: (DF TOPICAL)
     Route: 061
     Dates: start: 20110617, end: 20110617

REACTIONS (4)
  - HYPOAESTHESIA ORAL [None]
  - TYPE I HYPERSENSITIVITY [None]
  - BURNING SENSATION [None]
  - CHEST PAIN [None]
